FAERS Safety Report 4829482-8 (Version None)
Quarter: 2005Q4

REPORT INFORMATION
  Report Type: 
  Country: None (occurrence: None)
  Receive Date: 20051116
  Receipt Date: 20051109
  Transmission Date: 20060501
  Serious: Yes (Other)
  Sender: FDA-Public Use
  Company Number: US-MERCK-0511USA01684

PATIENT
  Age: 64 Year
  Sex: Female

DRUGS (2)
  1. HYDRODIURIL [Suspect]
     Route: 048
     Dates: start: 19880401
  2. AMILORIDE [Suspect]
     Route: 065
     Dates: start: 19880401

REACTIONS (1)
  - CUTANEOUS LUPUS ERYTHEMATOSUS [None]
